FAERS Safety Report 5501985-2 (Version None)
Quarter: 2007Q4

REPORT INFORMATION
  Report Type: 
  Country: None (occurrence: None)
  Receive Date: 20071030
  Receipt Date: 20071029
  Transmission Date: 20080405
  Serious: Yes (Hospitalization)
  Sender: FDA-Public Use
  Company Number: A0690173A

PATIENT
  Age: 16 Year
  Sex: Female

DRUGS (3)
  1. LAMICTAL [Suspect]
     Indication: MYOCLONUS
     Dosage: 200MG PER DAY
     Route: 048
     Dates: start: 20070801, end: 20070901
  2. BENZETACIL [Suspect]
     Route: 065
  3. DICLOFENAC SODIUM [Suspect]
     Route: 065

REACTIONS (5)
  - BLISTER [None]
  - PYREXIA [None]
  - RASH [None]
  - TONGUE BLISTERING [None]
  - TONSILLITIS [None]
